FAERS Safety Report 6058365-3 (Version None)
Quarter: 2009Q1

REPORT INFORMATION
  Report Type: 
  Country: None (occurrence: None)
  Receive Date: 20090130
  Receipt Date: 20090119
  Transmission Date: 20090719
  Serious: Yes (Hospitalization)
  Sender: FDA-Public Use
  Company Number: FR-BAXTER-2009BH000925

PATIENT
  Age: 42 Year
  Sex: Female

DRUGS (9)
  1. ALBUMIN (HUMAN) [Suspect]
     Indication: DRUG USE FOR UNKNOWN INDICATION
     Route: 042
     Dates: start: 20081009, end: 20081014
  2. AVLOCARDYL [Concomitant]
     Route: 048
     Dates: start: 20081010
  3. INIPOMP [Concomitant]
     Route: 048
     Dates: start: 20081006
  4. GUTRON [Concomitant]
     Route: 048
     Dates: start: 20081010
  5. SPECIAFOLDINE [Concomitant]
     Route: 048
     Dates: start: 20081010
  6. VITAMIN B [Concomitant]
     Route: 048
     Dates: start: 20081010
  7. SODIUM CHLORIDE [Concomitant]
     Dates: start: 20081010
  8. DOMPERIDONE [Concomitant]
     Route: 048
     Dates: start: 20081012
  9. DI-ANTALVIC [Concomitant]
     Route: 048
     Dates: start: 20080930

REACTIONS (3)
  - DYSPNOEA [None]
  - HEADACHE [None]
  - PYREXIA [None]
